FAERS Safety Report 8560890-8 (Version None)
Quarter: 2012Q3

REPORT INFORMATION
  Report Type: 
  Country: None (occurrence: None)
  Receive Date: 20120802
  Receipt Date: 20120730
  Transmission Date: 20120928
  Serious: Yes (Hospitalization)
  Sender: FDA-Public Use
  Company Number: DE-PFIZER INC-2012157559

PATIENT
  Age: 78 Year
  Sex: Female
  Weight: 47 kg

DRUGS (8)
  1. BISOPROLOL FUMARATE [Suspect]
     Indication: HYPERTENSION
     Dosage: 5.0 MG, TID
     Route: 048
     Dates: start: 20120518, end: 20120629
  2. PANTOPRAZOLE [Suspect]
     Indication: PROPHYLAXIS AGAINST GASTROINTESTINAL ULCER
     Dosage: 40 MG, OD
     Route: 048
     Dates: start: 20120518, end: 20120629
  3. CLOPIDOGREL BISULFATE [Suspect]
     Indication: ANTICOAGULANT THERAPY
     Dosage: 75 MG, OD
     Route: 048
     Dates: start: 20120518, end: 20120629
  4. PLACEBO [Suspect]
     Dosage: UNK MG, 1X/DAY
     Route: 048
     Dates: start: 20120518, end: 20120628
  5. RAMIPRIL [Suspect]
     Indication: HYPERTENSION
     Dosage: 2.5 MG, 1X/DAY
     Route: 048
     Dates: start: 20120518, end: 20120629
  6. SIMVASTATIN [Suspect]
     Indication: HYPERLIPIDAEMIA
     Dosage: 40 MG, 1X/DAY
     Route: 048
     Dates: start: 20120518, end: 20120629
  7. PLACEBO [Suspect]
     Indication: ACUTE MYOCARDIAL INFARCTION
     Dosage: 1X/DAY
     Route: 048
     Dates: start: 20120517, end: 20120517
  8. ASPIRIN [Concomitant]
     Indication: ANTICOAGULANT THERAPY
     Dosage: 100 MG, OD
     Route: 048
     Dates: start: 20120518

REACTIONS (2)
  - VERTIGO [None]
  - LEUKOPENIA [None]
